FAERS Safety Report 13573284 (Version 1)
Quarter: 2017Q2

REPORT INFORMATION
  Report Type: Spontaneous
  Country: FR (occurrence: FR)
  Receive Date: 20170523
  Receipt Date: 20170523
  Transmission Date: 20170830
  Serious: Yes (Life-Threatening)
  Sender: FDA-Public Use
  Company Number: FR-SA-2017SA091116

PATIENT
  Age: 67 Year
  Sex: Male

DRUGS (12)
  1. CUBICIN [Suspect]
     Active Substance: DAPTOMYCIN
     Indication: ENDOCARDITIS
     Route: 042
     Dates: start: 20170330
  2. CUBICIN [Suspect]
     Active Substance: DAPTOMYCIN
     Indication: ENDOCARDITIS
     Route: 042
     Dates: start: 20170415, end: 20170425
  3. IMOVANE [Concomitant]
     Active Substance: ZOPICLONE
  4. CALCIDOSE VITAMINE D3 [Concomitant]
     Active Substance: CALCIUM\CHOLECALCIFEROL
  5. RIFADINE [Suspect]
     Active Substance: RIFAMPIN
     Indication: ENDOCARDITIS
     Route: 048
     Dates: start: 20170407, end: 20170427
  6. LASILIX [Suspect]
     Active Substance: FUROSEMIDE
     Route: 042
     Dates: start: 20170329, end: 20170425
  7. KARDEGIC [Concomitant]
     Active Substance: ASPIRIN LYSINE
  8. HUMALOG [Concomitant]
     Active Substance: INSULIN LISPRO
  9. CALCIDOSE [Suspect]
     Active Substance: CALCIUM CARBONATE
     Route: 048
     Dates: start: 20170314, end: 20170425
  10. HEPARIN SODIUM. [Concomitant]
     Active Substance: HEPARIN SODIUM
  11. CUBICIN [Suspect]
     Active Substance: DAPTOMYCIN
     Indication: ENDOCARDITIS
     Route: 042
     Dates: start: 20170407
  12. BISOPROLOL [Concomitant]
     Active Substance: BISOPROLOL

REACTIONS (2)
  - Hallucination [Recovering/Resolving]
  - Status epilepticus [Recovering/Resolving]

NARRATIVE: CASE EVENT DATE: 20170425
